FAERS Safety Report 5795911-9 (Version None)
Quarter: 2008Q3

REPORT INFORMATION
  Report Type: 
  Country: None (occurrence: None)
  Receive Date: 20080701
  Receipt Date: 20080520
  Transmission Date: 20090109
  Serious: Yes (Other)
  Sender: FDA-Public Use
  Company Number: US-BAYER-200812421NA

PATIENT
  Age: 31 Year
  Sex: Female
  Weight: 54 kg

DRUGS (2)
  1. MIRENA [Suspect]
     Indication: CONTRACEPTION
     Route: 015
     Dates: start: 20071127, end: 20080129
  2. VITAMIN TAB [Concomitant]

REACTIONS (6)
  - FEELING ABNORMAL [None]
  - IUCD COMPLICATION [None]
  - POST PROCEDURAL DISCOMFORT [None]
  - POST PROCEDURAL HAEMORRHAGE [None]
  - PROCEDURAL PAIN [None]
  - UTERINE RUPTURE [None]
